FAERS Safety Report 15200993 (Version 2)
Quarter: 2018Q3

REPORT INFORMATION
  Report Type: Report from Study
  Country: MX (occurrence: MX)
  Receive Date: 20180726
  Receipt Date: 20180802
  Transmission Date: 20181010
  Serious: Yes (Death)
  Sender: FDA-Public Use
  Company Number: MX-UCBSA-2016043019

PATIENT
  Age: 1 Year
  Sex: Female
  Weight: 3 kg

DRUGS (1)
  1. LEVETIRACETAM. [Suspect]
     Active Substance: LEVETIRACETAM
     Indication: PRODUCT USED FOR UNKNOWN INDICATION
     Dosage: 0.4 ML, 2X/DAY (BID) (STRENGTH: 100MG/150ML )
     Route: 048
     Dates: start: 2016

REACTIONS (2)
  - Death [Fatal]
  - Intentional product misuse [Unknown]

NARRATIVE: CASE EVENT DATE: 2016
